FAERS Safety Report 20969403 (Version 4)
Quarter: 2022Q3

REPORT INFORMATION
  Report Type: Report from Study
  Country: US (occurrence: US)
  Receive Date: 20220616
  Receipt Date: 20220701
  Transmission Date: 20221027
  Serious: Yes (Death)
  Sender: FDA-Public Use
  Company Number: US-Taiho Oncology Inc-EU-2022-01106

PATIENT
  Age: 67 Year
  Sex: Female
  Weight: 83.082 kg

DRUGS (30)
  1. LONSURF [Suspect]
     Active Substance: TIPIRACIL HYDROCHLORIDE\TRIFLURIDINE
     Indication: Rectal cancer
     Dosage: CYCLE 4
     Route: 048
     Dates: start: 20220211, end: 202205
  2. LONSURF [Suspect]
     Active Substance: TIPIRACIL HYDROCHLORIDE\TRIFLURIDINE
     Indication: Malignant anorectal neoplasm
     Dosage: CURRENT CYCLE UNKNOWN.
     Route: 048
     Dates: start: 20220420
  3. AMLODIPINE [Concomitant]
     Active Substance: AMLODIPINE BESYLATE
  4. ASTEPRO [Concomitant]
     Active Substance: AZELASTINE HYDROCHLORIDE
  5. ATIVAN [Concomitant]
     Active Substance: LORAZEPAM
  6. CALMAG [Concomitant]
  7. CETIRIZINE [Concomitant]
     Active Substance: CETIRIZINE HYDROCHLORIDE
  8. DIPHENHYDRAMINE [Concomitant]
     Active Substance: DIPHENHYDRAMINE
  9. FISH OIL [Concomitant]
     Active Substance: FISH OIL
  10. HYOSCYAMINE [Concomitant]
     Active Substance: HYOSCYAMINE
  11. IBUPROFEN [Concomitant]
     Active Substance: IBUPROFEN
  12. IPRATROPIUM [Concomitant]
     Active Substance: IPRATROPIUM
  13. LEXAPRO [Concomitant]
     Active Substance: ESCITALOPRAM OXALATE
  14. LIDOCAINE\PRILOCAINE [Concomitant]
     Active Substance: LIDOCAINE\PRILOCAINE
  15. LORATADINE [Concomitant]
     Active Substance: LORATADINE
  16. LOMOTIL [Concomitant]
     Active Substance: ATROPINE SULFATE\DIPHENOXYLATE HYDROCHLORIDE
  17. MONTELUKAST [Concomitant]
     Active Substance: MONTELUKAST SODIUM
  18. MULTIPLE VITAMIN/ MINERAL [Concomitant]
  19. MYRBETRIQ [Concomitant]
     Active Substance: MIRABEGRON
  20. NASACORT [Concomitant]
     Active Substance: TRIAMCINOLONE ACETONIDE
  21. XARELTO [Concomitant]
     Active Substance: RIVAROXABAN
  22. ONDANSETRON [Concomitant]
     Active Substance: ONDANSETRON
  23. VITAMIN E [Concomitant]
     Active Substance: .ALPHA.-TOCOPHEROL
  24. PEPCID [Concomitant]
     Active Substance: FAMOTIDINE
  25. VITAMIN B12 [Concomitant]
     Active Substance: CYANOCOBALAMIN
  26. PROAIR HFA [Concomitant]
     Active Substance: ALBUTEROL SULFATE
  27. TRELEGY ELLIPTA [Concomitant]
     Active Substance: FLUTICASONE FUROATE\UMECLIDINIUM BROMIDE\VILANTEROL TRIFENATATE
  28. PROCHLORPERAZINE [Concomitant]
     Active Substance: PROCHLORPERAZINE
  29. TESSALON [Concomitant]
     Active Substance: BENZONATATE
  30. LOPERAMIDE [Concomitant]
     Active Substance: LOPERAMIDE

REACTIONS (3)
  - Death [Fatal]
  - Laryngitis [Unknown]
  - Nausea [Unknown]

NARRATIVE: CASE EVENT DATE: 20220527
